FAERS Safety Report 6033222-7 (Version None)
Quarter: 2008Q4

REPORT INFORMATION
  Report Type: 
  Country: None (occurrence: None)
  Receive Date: 20081224
  Receipt Date: 20081110
  Transmission Date: 20090506
  Serious: No
  Sender: FDA-Public Use
  Company Number: 2008PV037087

PATIENT
  Age: 64 Year
  Sex: Female

DRUGS (6)
  1. SYMLIN [Suspect]
     Indication: TYPE 2 DIABETES MELLITUS
     Dosage: 360 MCG;BID;SC; 540 MCG;BID;SC; 270 MCG;BID;SC; 90 MCG;BID;SC
     Route: 058
     Dates: start: 20080901, end: 20080901
  2. SYMLIN [Suspect]
     Indication: TYPE 2 DIABETES MELLITUS
     Dosage: 360 MCG;BID;SC; 540 MCG;BID;SC; 270 MCG;BID;SC; 90 MCG;BID;SC
     Route: 058
     Dates: start: 20080901, end: 20080901
  3. SYMLIN [Suspect]
     Indication: TYPE 2 DIABETES MELLITUS
     Dosage: 360 MCG;BID;SC; 540 MCG;BID;SC; 270 MCG;BID;SC; 90 MCG;BID;SC
     Route: 058
     Dates: start: 20080901, end: 20081001
  4. SYMLIN [Suspect]
     Indication: TYPE 2 DIABETES MELLITUS
     Dosage: 360 MCG;BID;SC; 540 MCG;BID;SC; 270 MCG;BID;SC; 90 MCG;BID;SC
     Route: 058
     Dates: start: 20081001
  5. LANTUS [Concomitant]
  6. METFORMIN [Concomitant]

REACTIONS (6)
  - BLOOD GLUCOSE INCREASED [None]
  - DIZZINESS [None]
  - DRUG INEFFECTIVE [None]
  - INCORRECT DOSE ADMINISTERED [None]
  - OVERDOSE [None]
  - WEIGHT INCREASED [None]
